FAERS Safety Report 23243469 (Version 2)
Quarter: 2023Q4

REPORT INFORMATION
  Report Type: Spontaneous
  Country: IT (occurrence: IT)
  Receive Date: 20231130
  Receipt Date: 20231218
  Transmission Date: 20240110
  Serious: Yes (Death, Life-Threatening, Other)
  Sender: FDA-Public Use
  Company Number: IT-MACLEODS PHARMACEUTICALS US LTD-MAC2023044481

PATIENT

DRUGS (6)
  1. AMLODIPINE BESYLATE [Interacting]
     Active Substance: AMLODIPINE BESYLATE
     Indication: Completed suicide
     Dosage: 14 DOSAGE FORM, SINGLE, (14 TABLETS PER BOTTLE AT 10 MG EACH)
     Route: 065
  2. CARVEDILOL [Interacting]
     Active Substance: CARVEDILOL
     Indication: Completed suicide
     Dosage: 30 DOSAGE FORM, SINGLE, (TWO BOTTLES, 30 TABLETS PER BOTTLE AT 25 MG EACH)
     Route: 065
  3. LACOSAMIDE [Suspect]
     Active Substance: LACOSAMIDE
     Indication: Product used for unknown indication
     Dosage: UNK
     Route: 065
  4. DOXAZOSIN [Interacting]
     Active Substance: DOXAZOSIN MESYLATE
     Indication: Completed suicide
     Dosage: 30 DOSAGE FORM, SINGLE, (30 TABLETS PER BOTTLE AT 2 MG EACH)
     Route: 065
  5. DOXAZOSIN [Interacting]
     Active Substance: DOXAZOSIN MESYLATE
     Dosage: 20 DOSAGE FORM, SINGLE, (20 TABLETS PER BOTTLE AT 4 MG EACH)
     Route: 065
  6. CLONAZEPAM [Suspect]
     Active Substance: CLONAZEPAM
     Indication: Product used for unknown indication
     Dosage: UNK
     Route: 065

REACTIONS (10)
  - Completed suicide [Fatal]
  - Brain oedema [Fatal]
  - Visceral congestion [Fatal]
  - Pulmonary oedema [Fatal]
  - Petechiae [Fatal]
  - Arteriosclerosis coronary artery [Fatal]
  - Intentional overdose [Fatal]
  - Coronary artery stenosis [Fatal]
  - Myocardial fibrosis [Fatal]
  - Drug interaction [Fatal]
